FAERS Safety Report 13759535 (Version 1)
Quarter: 2017Q3

REPORT INFORMATION
  Report Type: Spontaneous
  Country: GB (occurrence: GB)
  Receive Date: 20170717
  Receipt Date: 20170717
  Transmission Date: 20171127
  Serious: Yes (Other)
  Sender: FDA-Public Use
  Company Number: GB-PFIZER INC-2017304178

PATIENT
  Age: 58 Year
  Sex: Female
  Weight: 82 kg

DRUGS (21)
  1. METFORMIN [Concomitant]
     Active Substance: METFORMIN HYDROCHLORIDE
     Dosage: 1 DF, 1X/DAY WITH BREAKFAST
     Dates: start: 20160822
  2. MOMETASONE [Concomitant]
     Active Substance: MOMETASONE
     Dosage: 1 DF, 1X/DAY (SPRAY)
     Dates: start: 20160307
  3. TIBOLONE [Concomitant]
     Active Substance: TIBOLONE
     Dosage: 1 DF, 1X/DAY
     Dates: start: 20160720
  4. DOXYCYCLINE MONOHYDRATE [Suspect]
     Active Substance: DOXYCYCLINE
     Dosage: UNK
     Dates: start: 20161201
  5. HYDROXOCOBALAMIN [Concomitant]
     Active Substance: HYDROXOCOBALAMIN
     Dosage: 1 DF, EVERY 12 WEEKS
     Dates: start: 20151217
  6. SIMVASTATIN. [Concomitant]
     Active Substance: SIMVASTATIN
     Dosage: 1 DF, 1X/DAY AT NIGHT.
     Dates: start: 20160720
  7. HYOSCINE BUTYLBROMIDE [Concomitant]
     Active Substance: BUTYLSCOPOLAMINE
     Dosage: 1-2 FOUR TIMES A DAY BEFORE EATING
     Dates: start: 20161222, end: 20161229
  8. PARACETAMOL [Concomitant]
     Active Substance: ACETAMINOPHEN
     Indication: ANALGESIC THERAPY
     Dosage: TAKE 1 OR 2 4 TIMES/DAY
     Dates: start: 20151021
  9. SEEBRI BREEZHALER [Concomitant]
     Active Substance: GLYCOPYRROLATE
     Dosage: 1 DF, 1X/DAY
     Route: 055
     Dates: start: 20161103, end: 20161109
  10. CLARITHROMYCIN. [Suspect]
     Active Substance: CLARITHROMYCIN
     Dosage: UNK
     Dates: start: 20161201
  11. AMITRIPTYLINE HYDROCHLORIDE. [Concomitant]
     Active Substance: AMITRIPTYLINE HYDROCHLORIDE
     Dosage: 2 DF, 1X/DAY EACH NIGHT.
     Dates: start: 20160907
  12. CITALOPRAM [Concomitant]
     Active Substance: CITALOPRAM HYDROBROMIDE
     Dosage: 1 DF, 1X/DAY
     Dates: start: 20160822
  13. DUORESP SPIROMAX [Concomitant]
     Active Substance: BUDESONIDE\FORMOTEROL
     Dosage: 1 DF, 2X/DAY
     Route: 055
     Dates: start: 20160720
  14. SALBUTAMOL [Concomitant]
     Active Substance: ALBUTEROL
     Dosage: 2 DF, UNK
     Route: 055
     Dates: start: 20160822
  15. GABAPENTIN. [Concomitant]
     Active Substance: GABAPENTIN
     Dosage: 3 DF, 3X/DAY
     Dates: start: 20160720
  16. TRAMADOL. [Concomitant]
     Active Substance: TRAMADOL
     Dosage: TAKE ONE OR TWO UP TO FOUR TIMES A DAY
     Dates: start: 20160822
  17. ADCAL /00056901/ [Concomitant]
     Active Substance: CARBAZOCHROME
     Dosage: 1 DF, 2X/DAY
     Dates: start: 20150918
  18. CETIRIZINE [Concomitant]
     Active Substance: CETIRIZINE HYDROCHLORIDE
     Dosage: 1 DF, 1X/DAY
     Dates: start: 20160822
  19. LANSOPRAZOLE. [Concomitant]
     Active Substance: LANSOPRAZOLE
     Dosage: 1 DF, 1X/DAY IN THE MORNING
     Dates: start: 20160822
  20. PREDNISOLONE. [Concomitant]
     Active Substance: PREDNISOLONE
     Indication: ILL-DEFINED DISORDER
     Dosage: TAKE SIX TABLETS (30MG) EVERY MORNING FOR 7 DAYS
     Dates: start: 20160907, end: 20160914
  21. COLECALCIFEROL [Concomitant]
     Active Substance: CHOLECALCIFEROL
     Dosage: 2 DF, 2X/DAY
     Dates: start: 20160720

REACTIONS (2)
  - Abdominal discomfort [Recovered/Resolved]
  - Abdominal pain [Recovered/Resolved]

NARRATIVE: CASE EVENT DATE: 20161201
